FAERS Safety Report 16400111 (Version 1)
Quarter: 2019Q2

REPORT INFORMATION
  Report Type: Spontaneous
  Country: US (occurrence: US)
  Receive Date: 20190606
  Receipt Date: 20190606
  Transmission Date: 20190711
  Serious: No
  Sender: FDA-Public Use
  Company Number: US-ALLERGAN-1854480US

PATIENT
  Age: 36 Year
  Sex: Female

DRUGS (3)
  1. KYBELLA [Suspect]
     Active Substance: DEOXYCHOLIC ACID
     Indication: FAT TISSUE INCREASED
     Dosage: 10.6 ML, SINGLE
     Route: 058
     Dates: start: 20181119, end: 20181119
  2. ORTHO TRICYLCEN LO [Concomitant]
     Indication: ORAL CONTRACEPTION
     Dosage: UNK UNK, QD
     Route: 048
  3. HERPES MEDICATION [Concomitant]
     Indication: HERPES SIMPLEX
     Dosage: UNK, PRN
     Route: 048

REACTIONS (5)
  - Injection site erythema [Not Recovered/Not Resolved]
  - Off label use [Unknown]
  - Injection site warmth [Not Recovered/Not Resolved]
  - Injection site vesicles [Not Recovered/Not Resolved]
  - Injection site pain [Not Recovered/Not Resolved]

NARRATIVE: CASE EVENT DATE: 20181119
